FAERS Safety Report 12645747 (Version 1)
Quarter: 2016Q3

REPORT INFORMATION
  Report Type: Spontaneous
  Country: HR (occurrence: HR)
  Receive Date: 20160811
  Receipt Date: 20160811
  Transmission Date: 20161109
  Serious: Yes (Other)
  Sender: FDA-Public Use
  Company Number: HR-PFIZER INC-2016383325

PATIENT
  Age: 40 Year
  Sex: Male

DRUGS (2)
  1. ACITRETIN. [Concomitant]
     Active Substance: ACITRETIN
     Indication: PSORIASIS
     Dosage: UNK
  2. METHOTREXATE. [Suspect]
     Active Substance: METHOTREXATE
     Indication: PSORIASIS
     Dosage: UNK
     Dates: end: 201502

REACTIONS (4)
  - Renal failure [Unknown]
  - Haematuria [Unknown]
  - Sarcoidosis [Unknown]
  - IgA nephropathy [Unknown]
